FAERS Safety Report 10339710 (Version 2)
Quarter: 2014Q3

REPORT INFORMATION
  Report Type: Spontaneous
  Country: US (occurrence: US)
  Receive Date: 20140724
  Receipt Date: 20140806
  Transmission Date: 20150326
  Serious: Yes (Hospitalization)
  Sender: FDA-Public Use
  Company Number: US-GLAXOSMITHKLINE-A1082168A

PATIENT
  Sex: Male

DRUGS (7)
  1. ADVAIR HFA [Suspect]
     Active Substance: FLUTICASONE PROPIONATE\SALMETEROL XINAFOATE
     Indication: EMPHYSEMA
     Dosage: 1PUFF TWICE PER DAY
     Route: 055
     Dates: start: 2010
  2. ATROVENT [Concomitant]
     Active Substance: IPRATROPIUM BROMIDE
  3. MS CONTIN [Concomitant]
     Active Substance: MORPHINE SULFATE
  4. HYDROCODONE [Concomitant]
     Active Substance: HYDROCODONE
  5. LISINOPRIL. [Concomitant]
     Active Substance: LISINOPRIL
  6. FLOMAX [Concomitant]
     Active Substance: TAMSULOSIN HYDROCHLORIDE
  7. CHLORTHALIDONE. [Concomitant]
     Active Substance: CHLORTHALIDONE

REACTIONS (8)
  - White blood cell count increased [Unknown]
  - Hypoxia [Unknown]
  - Oxygen supplementation [Unknown]
  - Emphysema [Unknown]
  - Blood creatinine increased [Unknown]
  - Anaemia [Unknown]
  - Memory impairment [Unknown]
  - Fatigue [Unknown]
